FAERS Safety Report 17238476 (Version 1)
Quarter: 2020Q1

REPORT INFORMATION
  Report Type: Spontaneous
  Country: FR (occurrence: FR)
  Receive Date: 20200106
  Receipt Date: 20200106
  Transmission Date: 20200409
  Serious: Yes (Hospitalization)
  Sender: FDA-Public Use
  Company Number: FR-MYLANLABS-2020M1001239

PATIENT
  Age: 13 Year
  Sex: Male
  Weight: 41.8 kg

DRUGS (1)
  1. METHOTREXATE MYLAN [Suspect]
     Active Substance: METHOTREXATE SODIUM
     Indication: PRODUCT USED FOR UNKNOWN INDICATION
     Dosage: 16000 MILLIGRAM/SQ. METER, TOTAL
     Route: 040
     Dates: start: 20190903, end: 20190904

REACTIONS (2)
  - Acute kidney injury [Recovering/Resolving]
  - Chemotherapeutic drug level increased [Recovering/Resolving]

NARRATIVE: CASE EVENT DATE: 20190904
